FAERS Safety Report 4362639-1 (Version None)
Quarter: 2004Q2

REPORT INFORMATION
  Report Type: 
  Country: None (occurrence: None)
  Receive Date: 20040524
  Receipt Date: 20040414
  Transmission Date: 20050107
  Serious: Yes (Death)
  Sender: FDA-Public Use
  Company Number: PHBS2004JP05659

PATIENT
  Age: 45 Year
  Sex: Male

DRUGS (2)
  1. NEORAL [Suspect]
     Indication: STEM CELL TRANSPLANT
     Dosage: 6.25 MG/KG, BID
     Route: 048
  2. MYCOPHENOLATE MOFETIL [Concomitant]
     Indication: STEM CELL TRANSPLANT
     Dosage: 30 MG/KG/D
     Route: 048

REACTIONS (6)
  - GRAFT VERSUS HOST DISEASE [None]
  - HISTIOCYTOSIS HAEMATOPHAGIC [None]
  - NERVOUS SYSTEM DISORDER [None]
  - PANCYTOPENIA [None]
  - PYREXIA [None]
  - RASH [None]
